FAERS Safety Report 4606921-9 (Version None)
Quarter: 2005Q1

REPORT INFORMATION
  Report Type: 
  Country: None (occurrence: None)
  Receive Date: 20050309
  Receipt Date: 20050216
  Transmission Date: 20050727
  Serious: Yes (Death)
  Sender: FDA-Public Use
  Company Number: WAES 00080096

PATIENT
  Sex: Male

DRUGS (2)
  1. POST-TRIAL THERAPY [Concomitant]
  2. FOSAMAX [Suspect]
     Dosage: PO
     Route: 048

REACTIONS (1)
  - DEATH [None]
